FAERS Safety Report 12316439 (Version 1)
Quarter: 2016Q2

REPORT INFORMATION
  Report Type: Report from Study
  Country: US (occurrence: US)
  Receive Date: 20160429
  Receipt Date: 20160429
  Transmission Date: 20160815
  Serious: Yes (Hospitalization, Other)
  Sender: FDA-Public Use
  Company Number: US-EMD SERONO-E2B_80007338

PATIENT
  Age: 50 Year
  Sex: Male

DRUGS (1)
  1. REBIF [Suspect]
     Active Substance: INTERFERON BETA-1A
     Indication: MULTIPLE SCLEROSIS
     Route: 058
     Dates: start: 20140930

REACTIONS (11)
  - Cluster headache [Not Recovered/Not Resolved]
  - Nerve compression [Unknown]
  - Procedural pain [Not Recovered/Not Resolved]
  - Eye pain [Not Recovered/Not Resolved]
  - Burning sensation [Unknown]
  - Loss of consciousness [Not Recovered/Not Resolved]
  - Intervertebral disc protrusion [Unknown]
  - Fall [Unknown]
  - Blindness transient [Not Recovered/Not Resolved]
  - Deafness transitory [Unknown]
  - Ear discomfort [Unknown]

NARRATIVE: CASE EVENT DATE: 201501
